FAERS Safety Report 21886884 (Version 3)
Quarter: 2023Q2

REPORT INFORMATION
  Report Type: Spontaneous
  Country: US (occurrence: US)
  Receive Date: 20230119
  Receipt Date: 20230512
  Transmission Date: 20230721
  Serious: No
  Sender: FDA-Public Use
  Company Number: US-KARYOPHARM-2022KPT001353

PATIENT

DRUGS (2)
  1. XPOVIO [Suspect]
     Active Substance: SELINEXOR
     Indication: Plasma cell myeloma
     Dosage: 100 MG, WEEKLY
     Route: 048
     Dates: start: 20220919
  2. XPOVIO [Suspect]
     Active Substance: SELINEXOR
     Dosage: 120 MG, WEEKLY
     Route: 048
     Dates: start: 2023, end: 20230428

REACTIONS (5)
  - Diabetes mellitus [Unknown]
  - Mobility decreased [Unknown]
  - Carpal tunnel syndrome [Recovering/Resolving]
  - Fatigue [Unknown]
  - Product dose omission issue [Unknown]

NARRATIVE: CASE EVENT DATE: 20220101
